FAERS Safety Report 19000318 (Version 4)
Quarter: 2022Q2

REPORT INFORMATION
  Report Type: Spontaneous
  Country: CA (occurrence: CA)
  Receive Date: 20210311
  Receipt Date: 20220521
  Transmission Date: 20220721
  Serious: Yes (Other)
  Sender: FDA-Public Use
  Company Number: CA-CIPHER-2021-CA-000523

PATIENT
  Age: 70 Year
  Sex: Female

DRUGS (9)
  1. TRAMADOL HYDROCHLORIDE [Suspect]
     Active Substance: TRAMADOL HYDROCHLORIDE
     Indication: Product used for unknown indication
     Dosage: DOSE UNKNOWN
     Route: 065
  2. MEPOLIZUMAB [Suspect]
     Active Substance: MEPOLIZUMAB
     Indication: Asthma
     Dosage: MONTHLY
     Route: 042
     Dates: start: 20170111
  3. ALBUTEROL SULFATE [Suspect]
     Active Substance: ALBUTEROL SULFATE
     Dosage: 4 PUFFS AS NEEDED
  4. INDAPAMIDE [Suspect]
     Active Substance: INDAPAMIDE
  5. VITAMIN D [Suspect]
     Active Substance: VITAMIN D NOS
  6. CALCIUM CARBONATE [Suspect]
     Active Substance: CALCIUM CARBONATE
  7. BUDESONIDE\FORMOTEROL FUMARATE [Suspect]
     Active Substance: BUDESONIDE\FORMOTEROL FUMARATE
     Dosage: 2 EVERY 1 DAY, 2 PUFFS BID
  8. TYLENOL [Suspect]
     Active Substance: ACETAMINOPHEN
  9. TIOTROPIUM BROMIDE [Suspect]
     Active Substance: TIOTROPIUM BROMIDE

REACTIONS (26)
  - Dyspnoea [Unknown]
  - Dyspnoea exertional [Unknown]
  - Ear disorder [Unknown]
  - Hypersensitivity [Unknown]
  - Influenza [Unknown]
  - Lung opacity [Unknown]
  - Nasal polyps [Unknown]
  - Nasopharyngitis [Unknown]
  - Neck pain [Unknown]
  - Obstructive airways disorder [Unknown]
  - Asthma [Unknown]
  - Oropharyngeal pain [Unknown]
  - Osteopenia [Unknown]
  - Pneumonia [Unknown]
  - Productive cough [Unknown]
  - Therapeutic product effect incomplete [Unknown]
  - Throat irritation [Unknown]
  - Viral upper respiratory tract infection [Unknown]
  - Wheezing [Unknown]
  - Full blood count abnormal [Unknown]
  - Breath sounds abnormal [Unknown]
  - Bronchopulmonary aspergillosis allergic [Unknown]
  - Cataract [Unknown]
  - Condition aggravated [Unknown]
  - Cough [Unknown]
  - Dizziness [Unknown]

NARRATIVE: CASE EVENT DATE: 20170701
